FAERS Safety Report 7057424-6 (Version None)
Quarter: 2010Q4

REPORT INFORMATION
  Report Type: 
  Country: None (occurrence: None)
  Receive Date: 20101022
  Receipt Date: 20101013
  Transmission Date: 20110411
  Serious: Yes (Hospitalization)
  Sender: FDA-Public Use
  Company Number: BR-US-EMD SERONO, INC.-7022393

PATIENT
  Sex: Female

DRUGS (7)
  1. REBIF [Suspect]
     Indication: RELAPSING-REMITTING MULTIPLE SCLEROSIS
     Route: 058
     Dates: start: 20100810
  2. GABAPENTIN [Concomitant]
  3. PROPRANOLOL [Concomitant]
  4. DIGESAN [Concomitant]
  5. TAMISA [Concomitant]
     Indication: CONTRACEPTION
  6. PANTOPRAZOLE [Concomitant]
  7. CITALOPRAM HYDROBROMIDE [Concomitant]

REACTIONS (2)
  - INJECTION SITE REACTION [None]
  - MUSCULAR WEAKNESS [None]
